FAERS Safety Report 23074601 (Version 1)
Quarter: 2023Q4

REPORT INFORMATION
  Report Type: Spontaneous
  Country: US (occurrence: US)
  Receive Date: 20231017
  Receipt Date: 20231017
  Transmission Date: 20240110
  Serious: No
  Sender: FDA-Public Use
  Company Number: US-PFIZER INC-202300324963

PATIENT
  Age: 51 Year
  Sex: Female
  Weight: 68.49 kg

DRUGS (1)
  1. PAXLOVID [Suspect]
     Active Substance: NIRMATRELVIR\RITONAVIR
     Indication: COVID-19 treatment
     Dosage: 300MG, 2-150MG NIRMATRELVIR; 100MG-RITONAVIR, MORNING DOSE AND EVENING DOSE
     Dates: start: 20230912, end: 20230916

REACTIONS (1)
  - Cerebral disorder [Unknown]
